FAERS Safety Report 12242442 (Version 1)
Quarter: 2016Q2

REPORT INFORMATION
  Report Type: Report from Study
  Country: CA (occurrence: CA)
  Receive Date: 20160406
  Receipt Date: 20160406
  Transmission Date: 20160815
  Serious: Yes (Other)
  Sender: FDA-Public Use
  Company Number: PHHY2016CA044313

PATIENT
  Age: 65 Year
  Sex: Female

DRUGS (7)
  1. KEFLEX [Suspect]
     Active Substance: CEPHALEXIN
     Indication: CELLULITIS
     Dosage: 1 DF, UNK
     Route: 065
     Dates: start: 201601
  2. MULTI VITAMIN [Concomitant]
     Active Substance: VITAMINS
     Indication: PRODUCT USED FOR UNKNOWN INDICATION
     Route: 065
  3. REACTINE                           /01318001/ [Concomitant]
     Active Substance: CETIRIZINE HYDROCHLORIDE
     Indication: PRODUCT USED FOR UNKNOWN INDICATION
     Dosage: 20 MG, QD
     Route: 065
  4. VALSARTAN. [Suspect]
     Active Substance: VALSARTAN
     Indication: HYPERTENSION
     Route: 048
     Dates: start: 201011
  5. KEFLEX [Suspect]
     Active Substance: CEPHALEXIN
     Dosage: 2 DF, UNK
     Route: 065
  6. VITAMIN D [Concomitant]
     Active Substance: CHOLECALCIFEROL
     Indication: PRODUCT USED FOR UNKNOWN INDICATION
     Route: 065
  7. ASPIRIN                            /00346701/ [Concomitant]
     Active Substance: ASCORBIC ACID\ASPIRIN
     Indication: PRODUCT USED FOR UNKNOWN INDICATION
     Route: 065

REACTIONS (12)
  - Lip swelling [Unknown]
  - Pruritus [Unknown]
  - Chronic spontaneous urticaria [Unknown]
  - Blood cholesterol increased [Unknown]
  - Cellulitis [Unknown]
  - Paraesthesia [Unknown]
  - Urticaria [Unknown]
  - Diabetes mellitus [Unknown]
  - Insomnia [Unknown]
  - Angioedema [Unknown]
  - Thyroid disorder [Unknown]
  - Arthritis [Unknown]

NARRATIVE: CASE EVENT DATE: 20160123
